FAERS Safety Report 7672150-8 (Version None)
Quarter: 2011Q3

REPORT INFORMATION
  Report Type: 
  Country: None (occurrence: None)
  Receive Date: 20110809
  Receipt Date: 20110727
  Transmission Date: 20111222
  Serious: Yes (Other)
  Sender: FDA-Public Use
  Company Number: PHHY2011BR69605

PATIENT
  Sex: Male

DRUGS (2)
  1. SANDOSTATIN LAR [Suspect]
     Indication: ACROMEGALY
     Dosage: 20 MG EVERY 28 DAYS
  2. SANDOSTATIN LAR [Suspect]
     Dosage: 10 MG, UNK

REACTIONS (3)
  - BRAIN NEOPLASM [None]
  - HYPERTENSION [None]
  - HEADACHE [None]
